FAERS Safety Report 18695526 (Version 1)
Quarter: 2021Q1

REPORT INFORMATION
  Report Type: Spontaneous
  Country: US (occurrence: US)
  Receive Date: 20210104
  Receipt Date: 20210104
  Transmission Date: 20210419
  Serious: Yes (Hospitalization)
  Sender: FDA-Public Use
  Company Number: US-MYLANLABS-2020M1106386

PATIENT
  Age: 21 Year
  Sex: Male

DRUGS (1)
  1. KETAMINE [Suspect]
     Active Substance: KETAMINE
     Indication: PRODUCT USED FOR UNKNOWN INDICATION
     Dosage: 7?YEAR ABUSE OF INTRANASAL KETAMINE

REACTIONS (4)
  - Liver abscess [Recovering/Resolving]
  - Cystitis [Recovering/Resolving]
  - Drug abuse [Recovering/Resolving]
  - Klebsiella infection [Recovering/Resolving]
